FAERS Safety Report 6441197-1 (Version None)
Quarter: 2009Q4

REPORT INFORMATION
  Report Type: 
  Country: None (occurrence: None)
  Receive Date: 20091116
  Receipt Date: 20091112
  Transmission Date: 20100525
  Serious: Yes (Hospitalization, Other)
  Sender: FDA-Public Use
  Company Number: NO-JNJFOC-20091102237

PATIENT
  Sex: Female

DRUGS (3)
  1. REMICADE [Suspect]
     Indication: CROHN'S DISEASE
     Route: 042
  2. IMODIUM [Concomitant]
     Route: 048
  3. IMIGRAN [Concomitant]
     Route: 048

REACTIONS (2)
  - DEMYELINATION [None]
  - PARAESTHESIA [None]
